FAERS Safety Report 20026178 (Version 1)
Quarter: 2021Q4

REPORT INFORMATION
  Report Type: Spontaneous
  Country: SG (occurrence: SG)
  Receive Date: 20211102
  Receipt Date: 20211102
  Transmission Date: 20220303
  Serious: Yes (Other)
  Sender: FDA-Public Use
  Company Number: SG-LUPIN PHARMACEUTICALS INC.-2021-21285

PATIENT
  Age: 32 Year
  Sex: Female

DRUGS (8)
  1. BETAMETHASONE [Suspect]
     Active Substance: BETAMETHASONE
     Indication: Maternal therapy to enhance foetal lung maturity
     Dosage: UNK
     Route: 065
  2. DEXTROSE [Suspect]
     Active Substance: DEXTROSE
     Indication: Hypertriglyceridaemia
     Dosage: UNK
     Route: 065
  3. DEXTROSE [Suspect]
     Active Substance: DEXTROSE
     Indication: Pancreatitis acute
  4. INSULIN NOS [Suspect]
     Active Substance: INSULIN NOS
     Indication: Hypertriglyceridaemia
     Dosage: UNK
     Route: 042
  5. INSULIN NOS [Suspect]
     Active Substance: INSULIN NOS
     Indication: Pancreatitis acute
     Dosage: UNK
     Route: 058
  6. INSULIN NOS [Suspect]
     Active Substance: INSULIN NOS
     Dosage: 0.67 MICROGRAM/KILOGRAM, QD
     Route: 065
  7. OMEGA 3 [Suspect]
     Active Substance: CAPSAICIN
     Indication: Hypertriglyceridaemia
     Dosage: UNK
     Route: 065
  8. OMEGA 3 [Suspect]
     Active Substance: CAPSAICIN
     Indication: Pancreatitis acute

REACTIONS (5)
  - Exposure during pregnancy [Unknown]
  - Condition aggravated [Recovered/Resolved]
  - Hypertriglyceridaemia [Recovered/Resolved]
  - Pancreatitis acute [Recovered/Resolved]
  - Normal newborn [Unknown]
